FAERS Safety Report 24330823 (Version 2)
Quarter: 2024Q3

REPORT INFORMATION
  Report Type: Spontaneous
  Country: FR (occurrence: FR)
  Receive Date: 20240918
  Receipt Date: 20240928
  Transmission Date: 20241017
  Serious: Yes (Hospitalization)
  Sender: AUROBINDO
  Company Number: FR-AFSSAPS-AN2024001234

PATIENT
  Age: 43 Year
  Sex: Female
  Weight: 152 kg

DRUGS (6)
  1. OLANZAPINE [Suspect]
     Active Substance: OLANZAPINE
     Indication: Schizophrenia
     Dosage: 20 MILLIGRAM, ONCE A DAY
     Route: 030
     Dates: start: 20240803
  2. ZUCLOPENTHIXOL ACETATE [Suspect]
     Active Substance: ZUCLOPENTHIXOL ACETATE
     Indication: Schizophrenia
     Dosage: 1 DOSAGE FORM, AS NECESSARY (50 MG/ML,1 DOSAGE FORM)
     Route: 030
     Dates: start: 20240803
  3. ZUCLOPENTHIXOL ACETATE [Suspect]
     Active Substance: ZUCLOPENTHIXOL ACETATE
     Dosage: 3 DOSAGE FORM, 1 (TOTAL)
     Route: 030
     Dates: start: 20240808, end: 20240808
  4. LOXAPINE [Suspect]
     Active Substance: LOXAPINE
     Indication: Schizophrenia
     Dosage: 1 DOSAGE FORM (50 MG/2 ML, 1 DOSAGE FORM)
     Route: 030
     Dates: start: 20240803
  5. LOXAPINE [Suspect]
     Active Substance: LOXAPINE
     Dosage: 100 MILLIGRAM, ONCE A DAY
     Route: 030
     Dates: start: 20240807, end: 20240809
  6. VALIUM [Suspect]
     Active Substance: DIAZEPAM
     Indication: Agitation
     Dosage: 10 MILLIGRAM, AS NECESSARY (10 MG/2 ML,10 MILLIGRAM)
     Route: 030
     Dates: start: 20240803

REACTIONS (2)
  - Subileus [Recovered/Resolved]
  - Drug interaction [Recovered/Resolved]

NARRATIVE: CASE EVENT DATE: 20240809
